FAERS Safety Report 16912476 (Version 1)
Quarter: 2019Q4

REPORT INFORMATION
  Report Type: Spontaneous
  Country: US (occurrence: US)
  Receive Date: 20190821
  Receipt Date: 20190821
  Transmission Date: 20200122
  Serious: No
  Sender: FDA-Public Use
  Company Number: None

PATIENT

DRUGS (2)
  1. FOSPHENYTOIN [Suspect]
     Active Substance: FOSPHENYTOIN
     Dosage: ?          OTHER STRENGTH:100 MG PE PER 2 ML;OTHER ROUTE:IM OR IV?
  2. FAMOTIDINE. [Suspect]
     Active Substance: FAMOTIDINE
     Route: 042

REACTIONS (1)
  - Product appearance confusion [None]
